FAERS Safety Report 6759733-4 (Version None)
Quarter: 2010Q2

REPORT INFORMATION
  Report Type: 
  Country: None (occurrence: None)
  Receive Date: 20100608
  Receipt Date: 20100601
  Transmission Date: 20101027
  Serious: Yes (Hospitalization)
  Sender: FDA-Public Use
  Company Number: SE-JNJFOC-20100600514

PATIENT
  Age: 55 Year
  Sex: Male

DRUGS (14)
  1. DURAGESIC-100 [Suspect]
     Indication: CANCER PAIN
     Dosage: 5 PATCHES OF 100 UG/HR
     Route: 062
  2. PRIMPERAN TAB [Concomitant]
     Route: 065
  3. OMEPRAZOLE [Concomitant]
     Route: 065
  4. LAXOBERAL [Concomitant]
     Route: 065
  5. NOVALUCOL [Concomitant]
     Route: 065
  6. LACTULOSE [Concomitant]
     Route: 065
  7. MYCOSTATIN [Concomitant]
     Route: 065
  8. BETAPRED [Concomitant]
     Route: 065
  9. DICLOFENAC [Concomitant]
     Route: 065
  10. NEURONTIN [Concomitant]
     Route: 065
  11. TRYPTIZOL [Concomitant]
     Route: 065
  12. OXYCODONE HCL [Concomitant]
     Route: 065
  13. HYDROMORFON [Concomitant]
     Route: 065
  14. OXASCAND [Concomitant]
     Route: 065

REACTIONS (4)
  - DRUG INEFFECTIVE [None]
  - HYPERHIDROSIS [None]
  - PRODUCT QUALITY ISSUE [None]
  - WRONG TECHNIQUE IN DRUG USAGE PROCESS [None]
